FAERS Safety Report 19967530 (Version 1)
Quarter: 2021Q4

REPORT INFORMATION
  Report Type: Spontaneous
  Country: US (occurrence: US)
  Receive Date: 20211015
  Receipt Date: 20211015
  Transmission Date: 20220303
  Serious: No
  Sender: FDA-Public Use
  Company Number: None

PATIENT
  Age: 76 Year
  Sex: Male

DRUGS (1)
  1. CARVEDILOL [Suspect]
     Active Substance: CARVEDILOL
     Indication: Cardiac failure congestive
     Route: 048
     Dates: start: 20210402, end: 20210505

REACTIONS (2)
  - Angioedema [None]
  - Lip swelling [None]

NARRATIVE: CASE EVENT DATE: 20210702
